FAERS Safety Report 17794511 (Version 2)
Quarter: 2020Q2

REPORT INFORMATION
  Report Type: Spontaneous
  Country: US (occurrence: US)
  Receive Date: 20200516
  Receipt Date: 20200527
  Transmission Date: 20200714
  Serious: Yes (Other)
  Sender: FDA-Public Use
  Company Number: US-AUROBINDO-AUR-APL-2020-024696

PATIENT
  Sex: Male

DRUGS (2)
  1. DOFETILIDE 0.5 MG CAPSULES [Suspect]
     Active Substance: DOFETILIDE
     Indication: ARRHYTHMIA
     Dosage: 1 DOSAGE FORM, ONCE A DAY IN THE MORNING
     Route: 048
  2. DOFETILIDE 0.25 MG CAPSULES [Suspect]
     Active Substance: DOFETILIDE
     Indication: ARRHYTHMIA
     Dosage: 1 DOSAGE FORM, ONCE A DAY AT NIGHT
     Route: 048

REACTIONS (3)
  - Drug ineffective [Unknown]
  - Product substitution issue [Unknown]
  - Condition aggravated [Not Recovered/Not Resolved]
